FAERS Safety Report 6427786 (Version 28)
Quarter: 2014Q3

REPORT INFORMATION
  Report Type: Spontaneous
  Country: US (occurrence: US)
  Receive Date: 20070926
  Receipt Date: 20140721
  Transmission Date: 20150326
  Serious: Yes (Hospitalization, Other)
  Sender: FDA-Public Use
  Company Number: PHEH2007US12631

PATIENT
  Age: 64 Year
  Sex: Female
  Weight: 88.44 kg

DRUGS (75)
  1. DOCUSATE [Concomitant]
     Active Substance: DOCUSATE
     Dosage: 100 MG
  2. OXYBUTYNIN [Concomitant]
     Active Substance: OXYBUTYNIN
     Route: 048
  3. AUGMENTIN [Concomitant]
     Active Substance: AMOXICILLIN\CLAVULANATE POTASSIUM
  4. IRON [Concomitant]
     Active Substance: IRON
  5. POTASSIUM [Concomitant]
     Active Substance: POTASSIUM
  6. ZOMETA [Suspect]
     Active Substance: ZOLEDRONIC ACID
     Indication: PLASMA CELL MYELOMA
     Dosage: 4 MG, QMO
     Route: 042
     Dates: end: 200506
  7. THALIDOMIDE [Concomitant]
     Active Substance: THALIDOMIDE
     Dosage: 100 MG
     Dates: start: 20060119, end: 200710
  8. MORPHINE SULFATE. [Concomitant]
     Active Substance: MORPHINE SULFATE
  9. METRONIDAZOLE. [Concomitant]
     Active Substance: METRONIDAZOLE
  10. ZANTAC [Concomitant]
     Active Substance: RANITIDINE HYDROCHLORIDE
  11. SIMVASTATIN. [Concomitant]
     Active Substance: SIMVASTATIN
  12. ACETAMINOPHEN AND CODEINE [Concomitant]
     Active Substance: ACETAMINOPHEN\CODEINE PHOSPHATE
  13. AREDIA [Suspect]
     Active Substance: PAMIDRONATE DISODIUM
     Indication: PLASMA CELL MYELOMA
     Dosage: 90 MG, QMO
     Route: 042
  14. HYDROCODONE [Concomitant]
     Active Substance: HYDROCODONE
  15. DECADRON [Concomitant]
     Active Substance: DEXAMETHASONE
     Dosage: 40 MG
     Dates: start: 20060119
  16. LORATADINE. [Concomitant]
     Active Substance: LORATADINE
     Dosage: 10 MG
  17. PROMETHAZINE HYDROCHLORIDE. [Concomitant]
     Active Substance: PROMETHAZINE HYDROCHLORIDE
     Dosage: 25 MG
  18. NIFEDIPINE. [Concomitant]
     Active Substance: NIFEDIPINE
  19. NORMAL SALINE [Concomitant]
     Active Substance: SODIUM CHLORIDE
  20. DIFLUCAN [Concomitant]
     Active Substance: FLUCONAZOLE
     Dates: start: 20050907
  21. PREMARIN VAGINAL [Concomitant]
     Active Substance: ESTROGENS, CONJUGATED
  22. LUMIGAN [Concomitant]
     Active Substance: BIMATOPROST
  23. PIROXICAM. [Concomitant]
     Active Substance: PIROXICAM
  24. CATAPRES-TTS [Concomitant]
     Active Substance: CLONIDINE
     Dosage: 2 DF, QW
     Route: 062
     Dates: start: 19951108
  25. POTASSIUM CHLORIDE. [Concomitant]
     Active Substance: POTASSIUM CHLORIDE
  26. ISOPHANE INSULIN [Concomitant]
     Active Substance: INSULIN NOS
  27. K-DUR [Concomitant]
     Active Substance: POTASSIUM CHLORIDE
  28. MECLIZINE HYDROCHLORIDE. [Concomitant]
     Active Substance: MECLIZINE HYDROCHLORIDE
  29. MELPHALAN [Concomitant]
     Active Substance: MELPHALAN
  30. ALLEGRA [Concomitant]
     Active Substance: FEXOFENADINE HYDROCHLORIDE
  31. PHENERGAN [Concomitant]
     Active Substance: PROMETHAZINE HYDROCHLORIDE
  32. TYLENOL [Concomitant]
     Active Substance: ACETAMINOPHEN
  33. NORVASC [Concomitant]
     Active Substance: AMLODIPINE BESYLATE
  34. PROTONIX [Concomitant]
     Active Substance: PANTOPRAZOLE SODIUM
  35. CHEMOTHERAPEUTICS NOS [Concomitant]
     Active Substance: UNSPECIFIED INGREDIENT
  36. SENNOSIDE [Concomitant]
     Active Substance: SENNOSIDES
     Dosage: 8.6 MG
  37. HEMORRHOIDAL [Concomitant]
     Active Substance: PHENYLEPHRINE HYDROCHLORIDE\WITCH HAZEL
  38. CIPROFLOXACIN HYDROCHLORIDE. [Concomitant]
     Active Substance: CIPROFLOXACIN HYDROCHLORIDE
     Dosage: 500 MG
  39. PETROLATUM. [Concomitant]
     Active Substance: PETROLATUM
     Route: 061
  40. UNASYN FOR INJECTION [Concomitant]
  41. CLONIDINE. [Concomitant]
     Active Substance: CLONIDINE
  42. PERCOCET [Concomitant]
     Active Substance: ACETAMINOPHEN\OXYCODONE HYDROCHLORIDE
  43. PAXIL [Concomitant]
     Active Substance: PAROXETINE HYDROCHLORIDE
  44. GLIPIZIDE. [Concomitant]
     Active Substance: GLIPIZIDE
  45. FLUCONAZOLE. [Concomitant]
     Active Substance: FLUCONAZOLE
  46. HYDROXYZINE [Concomitant]
     Active Substance: HYDROXYZINE\HYDROXYZINE HYDROCHLORIDE
  47. LORTAB [Concomitant]
     Active Substance: ACETAMINOPHEN\HYDROCODONE BITARTRATE
  48. MS CONTIN [Concomitant]
     Active Substance: MORPHINE SULFATE
  49. HYDRALAZINE [Concomitant]
     Active Substance: HYDRALAZINE HYDROCHLORIDE
  50. MILK OF MAGNESIA [Concomitant]
     Active Substance: MAGNESIUM HYDROXIDE
  51. PENICILLIN V-K [Concomitant]
     Active Substance: PENICILLIN V POTASSIUM
  52. LEVAQUIN [Concomitant]
     Active Substance: LEVOFLOXACIN
     Dosage: 250 MG, QD
  53. NYSTATIN. [Concomitant]
     Active Substance: NYSTATIN
  54. NISOLDIPINE. [Concomitant]
     Active Substance: NISOLDIPINE
  55. GABAPENTIN. [Concomitant]
     Active Substance: GABAPENTIN
  56. ACYCLOVIR. [Concomitant]
     Active Substance: ACYCLOVIR
     Dosage: 800 MG
  57. HEPARIN-INJEKT [Concomitant]
  58. TRIAMCINOLONE [Concomitant]
     Active Substance: TRIAMCINOLONE
  59. ERYTHROMYCIN. [Concomitant]
     Active Substance: ERYTHROMYCIN
  60. RHINOCORT AQUA [Concomitant]
     Active Substance: BUDESONIDE
  61. AFRIN [Concomitant]
     Active Substance: OXYMETAZOLINE
  62. PAROXETINE [Concomitant]
     Active Substance: PAROXETINE\PAROXETINE HYDROCHLORIDE
  63. ASPIRIN ^BAYER^ [Concomitant]
     Active Substance: ASPIRIN
     Dosage: 325 MG
  64. DEXAMETHASONE. [Concomitant]
     Active Substance: DEXAMETHASONE
     Dosage: 4 MG
  65. CLOTRIMAZOLE. [Concomitant]
     Active Substance: CLOTRIMAZOLE
     Route: 061
  66. MACROBID [Concomitant]
     Active Substance: NITROFURANTOIN\NITROFURANTOIN MONOHYDRATE
  67. NITROFURAN [Concomitant]
     Active Substance: NITROFURANTOIN
  68. AMPICILLIN [Concomitant]
     Active Substance: AMPICILLIN
     Route: 048
     Dates: start: 20050907
  69. TRAZODONE HYDROCHLORIDE. [Concomitant]
     Active Substance: TRAZODONE HYDROCHLORIDE
  70. PREDNISONE. [Concomitant]
     Active Substance: PREDNISONE
  71. NASONEX [Concomitant]
     Active Substance: MOMETASONE FUROATE
  72. CALCIUM [Concomitant]
     Active Substance: CALCIUM
  73. RANITIDINE [Concomitant]
     Active Substance: RANITIDINE\RANITIDINE HYDROCHLORIDE
  74. SULAR [Concomitant]
     Active Substance: NISOLDIPINE
  75. CHLORHEXIDINE GLUCONATE. [Concomitant]
     Active Substance: CHLORHEXIDINE GLUCONATE

REACTIONS (136)
  - Respiratory tract infection [Unknown]
  - Back pain [Unknown]
  - Bladder cancer [Unknown]
  - Plasma cell myeloma [Unknown]
  - Anhedonia [Unknown]
  - Gingivitis [Unknown]
  - Oral pain [Unknown]
  - Plasmacytosis [Unknown]
  - Pleural effusion [Unknown]
  - Fungaemia [Unknown]
  - Pneumonia aspiration [Unknown]
  - Skin disorder [Unknown]
  - Wound [Unknown]
  - Visual impairment [Unknown]
  - Asthenia [Unknown]
  - Pneumonia [Unknown]
  - Spondylolisthesis [Unknown]
  - Deformity [Unknown]
  - Emotional distress [Unknown]
  - Toothache [Unknown]
  - Skin odour abnormal [Unknown]
  - Osteoarthritis [Unknown]
  - Oedema peripheral [Recovered/Resolved]
  - Varicose vein [Unknown]
  - Diabetic neuropathy [Unknown]
  - Brain midline shift [Unknown]
  - Gastritis [Unknown]
  - Amnesia [Unknown]
  - Feeling abnormal [Unknown]
  - Cough [Unknown]
  - Scoliosis [Unknown]
  - Osteopenia [Unknown]
  - Pain [Unknown]
  - Gingival bleeding [Unknown]
  - Gingival oedema [Unknown]
  - Anaemia [Unknown]
  - Hepatic cyst [Unknown]
  - Atelectasis [Unknown]
  - Vertebral osteophyte [Unknown]
  - Dyspnoea [Unknown]
  - Dysaesthesia [Unknown]
  - Oesophageal ulcer [Unknown]
  - Diabetic retinopathy [Unknown]
  - Macular degeneration [Unknown]
  - Dehydration [Unknown]
  - Kyphoscoliosis [Unknown]
  - Gingival disorder [Unknown]
  - Swelling [Unknown]
  - Pyrexia [Unknown]
  - Hypokalaemia [Unknown]
  - Presbyopia [Unknown]
  - Rectal haemorrhage [Unknown]
  - Cardiomegaly [Unknown]
  - Cystitis [Unknown]
  - Ischaemia [Unknown]
  - Aphagia [Unknown]
  - Mental status changes [Unknown]
  - Eschar [Unknown]
  - Balance disorder [Unknown]
  - Fatigue [Unknown]
  - Gastrointestinal haemorrhage [Unknown]
  - Mouth ulceration [Unknown]
  - Anxiety [Unknown]
  - Erythema [Unknown]
  - Depression [Unknown]
  - Cataract [Unknown]
  - Pulmonary vascular disorder [Unknown]
  - Lymphadenopathy [Unknown]
  - Pericardial effusion [Unknown]
  - Bronchitis [Unknown]
  - Sciatica [Unknown]
  - Cerebrovascular accident [Unknown]
  - Intermittent claudication [Unknown]
  - Hot flush [Unknown]
  - Cardiac valve disease [Unknown]
  - Lethargy [Unknown]
  - Pain in extremity [Unknown]
  - Intervertebral disc space narrowing [Unknown]
  - Osteonecrosis of jaw [Unknown]
  - Chills [Unknown]
  - Mass [Unknown]
  - Hyperlipidaemia [Unknown]
  - Gait disturbance [Unknown]
  - Skin candida [Unknown]
  - Haemorrhoids [Unknown]
  - Aortic disorder [Unknown]
  - Haemorrhagic transformation stroke [Unknown]
  - Mastoid disorder [Unknown]
  - Brain oedema [Unknown]
  - Somnolence [Unknown]
  - Musculoskeletal pain [Unknown]
  - Hemiplegia [Unknown]
  - Hypokinesia [Unknown]
  - Weight decreased [Unknown]
  - Musculoskeletal stiffness [Unknown]
  - Pneumonitis [Unknown]
  - Unresponsive to stimuli [Unknown]
  - Intervertebral disc degeneration [Unknown]
  - Diverticulum [Unknown]
  - Melaena [Unknown]
  - Life expectancy shortened [Unknown]
  - Aphthous stomatitis [Unknown]
  - Tooth disorder [Unknown]
  - Bone disorder [Unknown]
  - Enterovesical fistula [Unknown]
  - Renal cyst [Unknown]
  - Intestinal obstruction [Unknown]
  - Sinus disorder [Unknown]
  - Oropharyngeal pain [Unknown]
  - Sleep disorder [Recovering/Resolving]
  - Walking aid user [Unknown]
  - Aortic valve incompetence [Unknown]
  - Coronary artery disease [Unknown]
  - Orthopnoea [Unknown]
  - Asthma [Unknown]
  - Rales [Unknown]
  - Decubitus ulcer [Unknown]
  - Muscular weakness [Unknown]
  - Spinal osteoarthritis [Unknown]
  - Lipoma [Unknown]
  - Urinary tract infection [Unknown]
  - Escherichia infection [Unknown]
  - Haematuria [Recovered/Resolved]
  - Hypophagia [Unknown]
  - Biopsy gingival [Unknown]
  - Pain in jaw [Unknown]
  - Purulence [Unknown]
  - Tooth abscess [Unknown]
  - Glaucoma [Unknown]
  - Haematemesis [Unknown]
  - Vaginal infection [Unknown]
  - Obesity [Unknown]
  - Aortic arteriosclerosis [Unknown]
  - Gastrooesophageal reflux disease [Unknown]
  - Ear infection [Unknown]
  - Dysphagia [Unknown]

NARRATIVE: CASE EVENT DATE: 20041011
